FAERS Safety Report 22998446 (Version 2)
Quarter: 2023Q4

REPORT INFORMATION
  Report Type: Spontaneous
  Country: US (occurrence: US)
  Receive Date: 20230928
  Receipt Date: 20231002
  Transmission Date: 20240110
  Serious: No
  Sender: FDA-Public Use
  Company Number: US-AMGEN-USASP2023171934

PATIENT

DRUGS (4)
  1. OTEZLA [Suspect]
     Active Substance: APREMILAST
     Indication: Psoriasis
     Dosage: UNK
     Route: 065
  2. KETOCONAZOLE [Concomitant]
     Active Substance: KETOCONAZOLE
  3. CLOBETASOL [Concomitant]
     Active Substance: CLOBETASOL
  4. VTAMA [Concomitant]
     Active Substance: TAPINAROF

REACTIONS (1)
  - Vertigo [Unknown]
